FAERS Safety Report 6727445-9 (Version None)
Quarter: 2010Q2

REPORT INFORMATION
  Report Type: 
  Country: None (occurrence: None)
  Receive Date: 20100517
  Receipt Date: 20100506
  Transmission Date: 20101027
  Serious: Yes (Other)
  Sender: FDA-Public Use
  Company Number: AU-B.I. PHARMACEUTICALS,INC./RIDGEFIELD-2010-DE-02678GL

PATIENT
  Age: 79 Year
  Sex: Female

DRUGS (8)
  1. ASPIRIN [Suspect]
     Route: 065
  2. PARACETAMOL [Suspect]
     Route: 065
  3. TELMISARTAN [Suspect]
     Route: 065
  4. SIMVASTATIN [Suspect]
     Route: 065
  5. CALTRATE PLUS [Concomitant]
  6. GLUCOSAMINE HCL [Concomitant]
  7. BUPRENORPHINE [Concomitant]
  8. LANSOPRAZOLE [Concomitant]

REACTIONS (5)
  - DECREASED APPETITE [None]
  - HEPATITIS [None]
  - MALAISE [None]
  - NAUSEA [None]
  - WEIGHT DECREASED [None]
